FAERS Safety Report 20775965 (Version 1)
Quarter: 2022Q2

REPORT INFORMATION
  Report Type: Spontaneous
  Country: DE (occurrence: DE)
  Receive Date: 20220502
  Receipt Date: 20220502
  Transmission Date: 20220721
  Serious: Yes (Hospitalization)
  Sender: FDA-Public Use
  Company Number: DE-NOVARTISPH-NVSC2022DE099351

PATIENT
  Age: 74 Year
  Sex: Male

DRUGS (9)
  1. PIOGLITAZONE [Suspect]
     Active Substance: PIOGLITAZONE
     Indication: Product used for unknown indication
     Dosage: 45 MG
     Route: 048
     Dates: start: 20150610
  2. ETORICOXIB [Suspect]
     Active Substance: ETORICOXIB
     Indication: Product used for unknown indication
     Dosage: 30 MG
     Route: 048
     Dates: start: 20150610
  3. TORISEL [Suspect]
     Active Substance: TEMSIROLIMUS
     Indication: Metastatic malignant melanoma
     Dosage: 25 MG
     Route: 042
     Dates: start: 20140909
  4. TROFOSFAMIDE [Suspect]
     Active Substance: TROFOSFAMIDE
     Indication: Product used for unknown indication
     Dosage: 150 MG, QD
     Route: 048
     Dates: start: 20150610
  5. CIPROFLOXACIN [Concomitant]
     Active Substance: CIPROFLOXACIN
     Indication: Prophylaxis
     Dosage: 1000 MG, QD
     Route: 048
     Dates: start: 20140930
  6. SPIRONOLACTONE [Concomitant]
     Active Substance: SPIRONOLACTONE
     Indication: Oedema
     Dosage: 0-1-0
     Route: 048
     Dates: start: 20140909
  7. TORSEMIDE [Concomitant]
     Active Substance: TORSEMIDE
     Indication: Oedema
     Dosage: 1-1-(1/2)
     Route: 048
     Dates: start: 20140909
  8. PANTOZOL [Concomitant]
     Active Substance: PANTOPRAZOLE SODIUM
     Indication: Prophylaxis
     Dosage: 40 MG, QD
     Route: 048
     Dates: start: 20140909
  9. HYDROCHLOROTHIAZIDE [Concomitant]
     Active Substance: HYDROCHLOROTHIAZIDE
     Indication: Hypertension
     Dosage: 25 MG, QD
     Route: 048

REACTIONS (6)
  - Thoracic vertebral fracture [Recovered/Resolved]
  - Perirectal abscess [Recovered/Resolved]
  - Scapula fracture [Recovered/Resolved]
  - Pneumothorax traumatic [Recovered/Resolved]
  - Lumbar vertebral fracture [Recovered/Resolved]
  - Rib fracture [Recovered/Resolved]

NARRATIVE: CASE EVENT DATE: 20150313
